FAERS Safety Report 25284895 (Version 1)
Quarter: 2025Q2

REPORT INFORMATION
  Report Type: Report from Study
  Country: CA (occurrence: CA)
  Receive Date: 20250508
  Receipt Date: 20250508
  Transmission Date: 20250716
  Serious: Yes (Other)
  Sender: ABBVIE
  Company Number: CA-ABBVIE-6268055

PATIENT
  Age: 36 Year
  Sex: Female

DRUGS (4)
  1. RINVOQ [Suspect]
     Active Substance: UPADACITINIB
     Indication: Colitis ulcerative
     Dosage: FORM STRENGTH:30 MILLIGRAM
     Route: 048
  2. FENOFIBRATE [Concomitant]
     Active Substance: FENOFIBRATE
     Indication: Product used for unknown indication
  3. URSODIOL [Concomitant]
     Active Substance: URSODIOL
     Indication: Product used for unknown indication
  4. ENTYVIO [Concomitant]
     Active Substance: VEDOLIZUMAB
     Indication: Product used for unknown indication

REACTIONS (11)
  - Cholangiocarcinoma [Unknown]
  - Gamma-glutamyltransferase increased [Not Recovered/Not Resolved]
  - Carbohydrate antigen 19-9 increased [Not Recovered/Not Resolved]
  - Blood lactate dehydrogenase increased [Not Recovered/Not Resolved]
  - Blood bilirubin increased [Not Recovered/Not Resolved]
  - Alanine aminotransferase increased [Not Recovered/Not Resolved]
  - Cholangitis sclerosing [Unknown]
  - Hepatic fibrosis [Unknown]
  - Hepatic infection [Unknown]
  - Inflammatory bowel disease [Unknown]
  - Bilirubin conjugated increased [Not Recovered/Not Resolved]

NARRATIVE: CASE EVENT DATE: 20250306
